FAERS Safety Report 23387862 (Version 4)
Quarter: 2024Q2

REPORT INFORMATION
  Report Type: Spontaneous
  Country: US (occurrence: US)
  Receive Date: 20240110
  Receipt Date: 20240514
  Transmission Date: 20240717
  Serious: No
  Sender: FDA-Public Use
  Company Number: US-SA-SAC20240105000425

PATIENT
  Age: 14 Year
  Sex: Female

DRUGS (1)
  1. DUPIXENT [Suspect]
     Active Substance: DUPILUMAB
     Indication: Dermatitis atopic
     Dosage: 300 MG, QOW
     Route: 058
     Dates: start: 202310

REACTIONS (4)
  - Pruritus [Unknown]
  - Dermatitis atopic [Unknown]
  - Product dose omission issue [Unknown]
  - Rash [Unknown]
